FAERS Safety Report 9343696 (Version 3)
Quarter: 2013Q3

REPORT INFORMATION
  Report Type: Report from Study
  Country: BR (occurrence: BR)
  Receive Date: 20130612
  Receipt Date: 20130815
  Transmission Date: 20140515
  Serious: Yes (Other)
  Sender: FDA-Public Use
  Company Number: PHHY2013BR059152

PATIENT
  Age: 39 Year
  Sex: Female

DRUGS (6)
  1. RITALINA [Suspect]
     Indication: ATTENTION DEFICIT/HYPERACTIVITY DISORDER
     Dosage: UNK UKN, BID
  2. RITALIN LA [Suspect]
     Indication: ATTENTION DEFICIT/HYPERACTIVITY DISORDER
     Dosage: UNK UKN, QD
  3. DEPAKOTE - SLOW RELEASE [Concomitant]
     Indication: EPILEPSY
     Dosage: 1 DF, DAILY
     Route: 048
     Dates: start: 201212
  4. DEPAKOTE SPRINKLE [Concomitant]
     Indication: EPILEPSY
     Dosage: 1 DF, DAILY
     Route: 048
  5. CARBAMAZEPINE [Concomitant]
     Indication: EPILEPSY
     Dosage: 0.5 DF, DAILY
     Route: 048
     Dates: start: 201212
  6. AEROLIN [Concomitant]
     Indication: ASTHMA
     Dosage: UNK UKN, UNK(WHEN SHE EXPERIENCED ASTHMA EPISODES)

REACTIONS (11)
  - Intentional self-injury [Recovering/Resolving]
  - Dependence [Recovering/Resolving]
  - Asthma [Recovering/Resolving]
  - Affective disorder [Recovering/Resolving]
  - Feeling abnormal [Recovering/Resolving]
  - Muscle twitching [Recovering/Resolving]
  - Mental disorder [Recovering/Resolving]
  - Aggression [Recovering/Resolving]
  - Depression [Recovering/Resolving]
  - Vitamin D deficiency [Recovering/Resolving]
  - Osteopenia [Recovering/Resolving]
